FAERS Safety Report 16264324 (Version 1)
Quarter: 2019Q2

REPORT INFORMATION
  Report Type: Spontaneous
  Country: SE (occurrence: SE)
  Receive Date: 20190502
  Receipt Date: 20190502
  Transmission Date: 20190711
  Serious: Yes (Hospitalization)
  Sender: FDA-Public Use
  Company Number: SE-PFIZER INC-2019180288

PATIENT
  Age: 23 Year
  Sex: Female

DRUGS (4)
  1. LAMOTRIGINE. [Suspect]
     Active Substance: LAMOTRIGINE
     Dosage: UNK
  2. LYRICA [Suspect]
     Active Substance: PREGABALIN
     Dosage: UNK
  3. LOPERAMIDE [Suspect]
     Active Substance: LOPERAMIDE
     Dosage: UNK, OVERDOSE
     Route: 048
     Dates: start: 20171124, end: 20171124
  4. FLUOXETINE [Suspect]
     Active Substance: FLUOXETINE HYDROCHLORIDE
     Dosage: UNK

REACTIONS (6)
  - Intentional overdose [Unknown]
  - Depressed level of consciousness [Unknown]
  - Respiratory depression [Unknown]
  - Intentional self-injury [Unknown]
  - Electrocardiogram ST segment depression [Unknown]
  - Miosis [Unknown]

NARRATIVE: CASE EVENT DATE: 20171124
